FAERS Safety Report 6678881-0 (Version None)
Quarter: 2010Q2

REPORT INFORMATION
  Report Type: 
  Country: None (occurrence: None)
  Receive Date: 20100413
  Receipt Date: 20100407
  Transmission Date: 20101027
  Serious: Yes (Other)
  Sender: FDA-Public Use
  Company Number: US-BRISTOL-MYERS SQUIBB COMPANY-15054505

PATIENT
  Sex: Female

DRUGS (2)
  1. ABILIFY [Suspect]
     Route: 048
  2. CYMBALTA [Suspect]

REACTIONS (1)
  - MOVEMENT DISORDER [None]
